FAERS Safety Report 5839859-X (Version None)
Quarter: 2008Q3

REPORT INFORMATION
  Report Type: 
  Country: None (occurrence: None)
  Receive Date: 20080811
  Receipt Date: 20080731
  Transmission Date: 20090109
  Serious: Yes (Disabling, Other)
  Sender: FDA-Public Use
  Company Number: GR-AMGEN-UK296422

PATIENT
  Age: 32 Year
  Sex: Male
  Weight: 58.4 kg

DRUGS (5)
  1. ARANESP [Suspect]
     Indication: RENAL FAILURE CHRONIC
     Route: 042
     Dates: start: 20070501, end: 20080501
  2. NEORECORMON [Suspect]
     Route: 065
     Dates: start: 20080501, end: 20080703
  3. EPREX [Suspect]
     Route: 065
     Dates: start: 20080703
  4. ANAGRELIDE HCL [Suspect]
     Route: 065
  5. HYDROXYUREA [Concomitant]
     Route: 065

REACTIONS (4)
  - DRUG INEFFECTIVE [None]
  - FIBROSIS [None]
  - GRAFT INFECTION [None]
  - HAEMATOCRIT DECREASED [None]
